FAERS Safety Report 16548503 (Version 1)
Quarter: 2019Q3

REPORT INFORMATION
  Report Type: Spontaneous
  Country: ES (occurrence: ES)
  Receive Date: 20190709
  Receipt Date: 20190709
  Transmission Date: 20191004
  Serious: Yes (Hospitalization)
  Sender: FDA-Public Use
  Company Number: ES-TEVA-2019-ES-1074240

PATIENT
  Age: 34 Year
  Sex: Female

DRUGS (3)
  1. ZINNAT 500 MG COMPRIMIDOS RECUBIERTOS CON PELICULA [Suspect]
     Active Substance: CEFUROXIME AXETIL
     Indication: BIOPSY MUSCLE
     Dosage: 1000 MG
     Dates: start: 20180823, end: 20180917
  2. ENANTYUM 25 MG, GRANULADO PARA SOLUCION ORAL , 20 SOBRES [Suspect]
     Active Substance: DEXKETOPROFEN TROMETAMOL
     Indication: ANALGESIC THERAPY
     Dates: start: 20180823, end: 20180917
  3. TRAMADOL (2389A) [Suspect]
     Active Substance: TRAMADOL
     Indication: ANALGESIC THERAPY
     Dates: start: 20180913, end: 20180917

REACTIONS (3)
  - Balance disorder [Recovered/Resolved]
  - Dizziness [Recovered/Resolved]
  - Headache [Recovered/Resolved]

NARRATIVE: CASE EVENT DATE: 20180917
